FAERS Safety Report 15151794 (Version 1)
Quarter: 2018Q3

REPORT INFORMATION
  Report Type: Report from Study
  Country: US (occurrence: US)
  Receive Date: 20180716
  Receipt Date: 20180716
  Transmission Date: 20181010
  Serious: Yes (Hospitalization, Other)
  Sender: FDA-Public Use
  Company Number: US-BEH-2018092687

PATIENT
  Sex: Male
  Weight: 2.14 kg

DRUGS (9)
  1. CYTOGAM [Suspect]
     Active Substance: HUMAN CYTOMEGALOVIRUS IMMUNE GLOBULIN
     Dosage: UNK
     Route: 064
  2. BLINDED ALBUMIN 5% [Suspect]
     Active Substance: ALBUMIN HUMAN
     Dosage: UNK
     Route: 064
  3. CYTOGAM [Suspect]
     Active Substance: HUMAN CYTOMEGALOVIRUS IMMUNE GLOBULIN
     Dosage: UNK
     Route: 064
  4. ALBUMINAR?5 [Suspect]
     Active Substance: ALBUMIN HUMAN
     Indication: PRODUCT USED FOR UNKNOWN INDICATION
     Dosage: 185.4 UNK, QMT
     Route: 064
     Dates: start: 20180129, end: 20180227
  5. ALBUMINAR?5 [Suspect]
     Active Substance: ALBUMIN HUMAN
     Dosage: UNK
     Route: 064
  6. ALBUMINAR?5 [Suspect]
     Active Substance: ALBUMIN HUMAN
     Dosage: UNK
     Route: 064
  7. BLINDED ALBUMIN 5% [Suspect]
     Active Substance: ALBUMIN HUMAN
     Indication: PRODUCT USED FOR UNKNOWN INDICATION
     Dosage: 185.4 UNK, QMT
     Route: 064
     Dates: start: 20180129, end: 20180227
  8. CYTOGAM [Suspect]
     Active Substance: HUMAN CYTOMEGALOVIRUS IMMUNE GLOBULIN
     Indication: PRODUCT USED FOR UNKNOWN INDICATION
     Dosage: 185.4 UNK, QMT
     Route: 064
     Dates: start: 20180129, end: 20180227
  9. BLINDED ALBUMIN 5% [Suspect]
     Active Substance: ALBUMIN HUMAN
     Dosage: UNK
     Route: 064

REACTIONS (7)
  - Premature baby [Recovering/Resolving]
  - Neonatal respiratory distress [Recovering/Resolving]
  - Thrombocytopenia [Recovering/Resolving]
  - Foetal heart rate deceleration abnormality [Unknown]
  - Ascites [Unknown]
  - Pneumomediastinum [Recovering/Resolving]
  - Foetal growth restriction [Unknown]

NARRATIVE: CASE EVENT DATE: 20180314
